FAERS Safety Report 6356928-9 (Version None)
Quarter: 2009Q3

REPORT INFORMATION
  Report Type: 
  Country: None (occurrence: None)
  Receive Date: 20090915
  Receipt Date: 20090907
  Transmission Date: 20100115
  Serious: Yes (Death, Life-Threatening, Hospitalization, Other)
  Sender: FDA-Public Use
  Company Number: JP-PFIZER INC-2008083832

PATIENT
  Age: 29 Year

DRUGS (63)
  1. SILDENAFIL CITRATE [Suspect]
     Indication: PULMONARY ARTERIAL HYPERTENSION
     Dosage: 30 MG, 3X/DAY
     Route: 048
     Dates: start: 20080424, end: 20081216
  2. DOBUTAMINE HCL [Concomitant]
     Dosage: UNK
     Route: 042
     Dates: start: 20080801
  3. DOBUTAMINE HCL [Concomitant]
     Dosage: UNK
     Route: 042
     Dates: end: 20080523
  4. DOPAMINE HYDROCHLORIDE [Concomitant]
     Dosage: UNK
     Route: 042
     Dates: start: 20080827
  5. DOPAMINE HYDROCHLORIDE [Concomitant]
     Dosage: UNK
     Route: 042
     Dates: end: 20080529
  6. LASIX [Concomitant]
     Route: 042
     Dates: start: 20080425
  7. DOPAMINE HCL [Concomitant]
     Route: 042
     Dates: end: 20080529
  8. HEPARIN SODIUM [Concomitant]
     Route: 042
  9. FLOLAN [Concomitant]
     Indication: PULMONARY ARTERIAL HYPERTENSION
     Dosage: UNK
     Route: 042
     Dates: start: 20080427
  10. TORASEMIDE [Concomitant]
     Indication: PULMONARY ARTERIAL HYPERTENSION
     Dosage: UNK
     Route: 048
     Dates: start: 20080426, end: 20080830
  11. LOXOPROFEN SODIUM [Concomitant]
     Dosage: UNK
     Route: 048
     Dates: start: 20080507, end: 20081002
  12. MAGNESIUM OXIDE [Concomitant]
     Dosage: UNK
     Route: 048
     Dates: start: 20080507, end: 20080720
  13. LENDORMIN [Concomitant]
     Dosage: UNK
     Route: 048
     Dates: start: 20080510, end: 20081002
  14. ALDACTONE [Concomitant]
     Dosage: UNK
     Route: 048
     Dates: end: 20081002
  15. FLUITRAN [Concomitant]
     Indication: PULMONARY ARTERIAL HYPERTENSION
     Dosage: UNK
     Route: 048
     Dates: end: 20081002
  16. LAC B [Concomitant]
     Dosage: UNK
     Route: 048
     Dates: start: 20080720, end: 20080813
  17. ACARDI [Concomitant]
     Dosage: UNK
     Route: 048
     Dates: start: 20080803, end: 20081002
  18. TRACLEER [Concomitant]
     Indication: PULMONARY ARTERIAL HYPERTENSION
     Dosage: UNK
     Route: 048
     Dates: start: 20080813, end: 20081005
  19. LOPEMIN [Concomitant]
     Dosage: UNK
     Route: 048
     Dates: start: 20080801, end: 20080803
  20. SLOW-K [Concomitant]
     Dosage: UNK
     Route: 048
     Dates: start: 20080820, end: 20080922
  21. EPINASTINE HYDROCHLORIDE [Concomitant]
     Dosage: UNK
     Route: 048
     Dates: start: 20080824, end: 20080916
  22. IMATINIB MESILATE [Concomitant]
     Indication: PULMONARY ARTERIAL HYPERTENSION
     Dosage: UNK
     Route: 048
     Dates: start: 20080917, end: 20081005
  23. FAMOTIDINE [Concomitant]
     Dosage: UNK
     Route: 048
     Dates: start: 20080924, end: 20081005
  24. THYRADIN S [Concomitant]
     Dosage: UNK
     Route: 048
     Dates: start: 20081030
  25. CARBAZOCHROME SODIUM SULFONATE [Concomitant]
     Dosage: UNK
     Route: 042
     Dates: start: 20080820, end: 20080824
  26. TRANEXAMIC ACID [Concomitant]
     Dosage: UNK
     Route: 042
     Dates: start: 20080820, end: 20080824
  27. FUROSEMIDE [Concomitant]
     Dosage: UNK
     Route: 042
     Dates: start: 20080826, end: 20081024
  28. RASENAZOLIN [Concomitant]
     Dosage: UNK
     Route: 042
     Dates: start: 20080901, end: 20080903
  29. METHYLPREDNISOLONE SODIUM SUCCINATE [Concomitant]
     Dosage: UNK
     Route: 042
     Dates: start: 20080924, end: 20081101
  30. DAIPHEN [Concomitant]
     Dosage: UNK
     Route: 048
     Dates: start: 20080929, end: 20081111
  31. DAIPHEN [Concomitant]
     Dosage: UNK
     Route: 048
     Dates: start: 20081028, end: 20081112
  32. TAKEPRON [Concomitant]
     Dosage: UNK
     Route: 048
     Dates: start: 20081120
  33. DEPAKENE [Concomitant]
     Dosage: UNK
     Route: 048
     Dates: start: 20081126
  34. MAG-LAX [Concomitant]
     Dosage: UNK
     Route: 048
     Dates: start: 20080921, end: 20080925
  35. CEFOTIAM HYDROCHLORIDE [Concomitant]
     Dosage: UNK
     Route: 042
     Dates: start: 20080925, end: 20080925
  36. NAFAMOSTAT MESILATE [Concomitant]
     Dosage: UNK
     Route: 042
     Dates: start: 20080926
  37. BISOLVON [Concomitant]
     Dosage: UNK
     Route: 055
     Dates: start: 20080926
  38. ELASPOL [Concomitant]
     Dosage: UNK
     Route: 042
     Dates: start: 20080927, end: 20081014
  39. CLINDAMYCIN [Concomitant]
     Dosage: UNK
     Route: 042
     Dates: start: 20080927, end: 20081016
  40. NORADRENALINE [Concomitant]
     Dosage: UNK
     Route: 042
     Dates: start: 20080928
  41. FENTANYL [Concomitant]
     Dosage: UNK
     Route: 042
     Dates: start: 20080925, end: 20080925
  42. BOSMIN [Concomitant]
     Dosage: UNK
     Route: 042
     Dates: start: 20080925, end: 20080925
  43. PROPOFOL [Concomitant]
     Dosage: UNK
     Route: 042
     Dates: start: 20080925, end: 20081119
  44. MIDAZOLAM [Concomitant]
     Dosage: UNK
     Route: 042
     Dates: start: 20080925, end: 20081119
  45. VECURONIUM BROMIDE [Concomitant]
     Dosage: UNK
     Route: 042
     Dates: start: 20080925, end: 20080925
  46. MEROPEN [Concomitant]
     Dosage: UNK
     Route: 042
     Dates: start: 20080925, end: 20080929
  47. PANTOL [Concomitant]
     Dosage: UNK
     Route: 042
     Dates: start: 20080929, end: 20081125
  48. HUMULIN R [Concomitant]
     Dosage: UNK
     Route: 042
     Dates: start: 20080930, end: 20081126
  49. VANCOMYCIN [Concomitant]
     Dosage: UNK
     Route: 042
     Dates: start: 20081005, end: 20081030
  50. OMEPRAL [Concomitant]
     Dosage: UNK
     Route: 042
     Dates: start: 20081005, end: 20081119
  51. CIPROXAN [Concomitant]
     Dosage: UNK
     Route: 042
     Dates: start: 20080930, end: 20081202
  52. PITRESSIN [Concomitant]
     Dosage: UNK
     Route: 042
     Dates: start: 20081022, end: 20081029
  53. RED BLOOD CELLS, LEUCOCYTE DEPLETED [Concomitant]
     Dosage: UNK
     Route: 042
     Dates: start: 20081001
  54. FRESH FROZEN PLASMA [Concomitant]
     Dosage: UNK
     Route: 042
     Dates: start: 20080924
  55. ALBUMINAR [Concomitant]
     Dosage: UNK
     Route: 042
     Dates: start: 20080926
  56. FIRSTCIN [Concomitant]
     Dosage: UNK
     Route: 042
     Dates: start: 20081017, end: 20081215
  57. GENTAMICIN [Concomitant]
     Dosage: UNK
     Route: 042
     Dates: start: 20081017, end: 20081030
  58. ROPION [Concomitant]
     Dosage: UNK
     Route: 042
     Dates: start: 20081022, end: 20081022
  59. MINOCYCLINE [Concomitant]
     Dosage: UNK
     Route: 042
     Dates: start: 20081031, end: 20081110
  60. PLATELETS, HUMAN BLOOD [Concomitant]
     Dosage: UNK
     Route: 042
     Dates: start: 20080901
  61. OXYGEN [Concomitant]
     Route: 055
  62. NITRIC OXIDE [Concomitant]
     Dosage: UNK
     Route: 055
     Dates: start: 20081022, end: 20081102
  63. DEXAMETHASONE [Concomitant]
     Route: 062

REACTIONS (16)
  - CARDIAC FAILURE [None]
  - CARDIOGENIC SHOCK [None]
  - CLONIC CONVULSION [None]
  - DUODENAL ULCER HAEMORRHAGE [None]
  - GASTROINTESTINAL HYPOMOTILITY [None]
  - ILEUS PARALYTIC [None]
  - MULTI-ORGAN FAILURE [None]
  - PHLEBITIS INFECTIVE [None]
  - PLATELET COUNT DECREASED [None]
  - PNEUMONIA [None]
  - PNEUMOTHORAX [None]
  - PULMONARY ALVEOLAR HAEMORRHAGE [None]
  - RENAL FAILURE ACUTE [None]
  - RIGHT VENTRICULAR FAILURE [None]
  - SEPSIS [None]
  - SEPTIC SHOCK [None]
